FAERS Safety Report 13329051 (Version 1)
Quarter: 2017Q1

REPORT INFORMATION
  Report Type: Spontaneous
  Country: US (occurrence: US)
  Receive Date: 20170313
  Receipt Date: 20170313
  Transmission Date: 20170428
  Serious: Yes (Other)
  Sender: FDA-Public Use
  Company Number: None

PATIENT
  Age: 57 Year
  Sex: Female
  Weight: 98.55 kg

DRUGS (9)
  1. METFORMIN [Concomitant]
     Active Substance: METFORMIN HYDROCHLORIDE
  2. OXYCODONE AND ACETAMINOPHEN [Suspect]
     Active Substance: ACETAMINOPHEN\OXYCODONE HYDROCHLORIDE
     Indication: PAIN
     Dosage: ?          OTHER STRENGTH:325;QUANTITY:12 TABLET(S);?
     Route: 048
     Dates: start: 20170223, end: 20170307
  3. OMEPERZOL [Concomitant]
  4. ALBUTERAL [Concomitant]
     Active Substance: ALBUTEROL
  5. C-PAP MACHINE [Concomitant]
     Active Substance: DEVICE
  6. B-STRESS VITAMINS [Concomitant]
  7. OXYCODONE AND ACETAMINOPHEN [Suspect]
     Active Substance: ACETAMINOPHEN\OXYCODONE HYDROCHLORIDE
     Indication: PROCEDURAL COMPLICATION
     Dosage: ?          OTHER STRENGTH:325;QUANTITY:12 TABLET(S);?
     Route: 048
     Dates: start: 20170223, end: 20170307
  8. MULTI-VITAMIN [Concomitant]
     Active Substance: .ALPHA.-TOCOPHEROL ACETATE, DL-\ASCORBIC ACID\CYANOCOBALAMIN\FLUORIDE ION\FOLIC ACID\NIACIN\PYRIDOXINE\RIBOFLAVIN\THIAMINE\VITAMIN A\VITAMIN D
  9. OXYCODONE AND ACETAMINOPHEN [Suspect]
     Active Substance: ACETAMINOPHEN\OXYCODONE HYDROCHLORIDE
     Indication: KNEE ARTHROPLASTY
     Dosage: ?          OTHER STRENGTH:325;QUANTITY:12 TABLET(S);?
     Route: 048
     Dates: start: 20170223, end: 20170307

REACTIONS (8)
  - Product quality issue [None]
  - Fatigue [None]
  - Drug ineffective [None]
  - Decreased appetite [None]
  - Hypertension [None]
  - Abdominal discomfort [None]
  - Malaise [None]
  - Somnolence [None]

NARRATIVE: CASE EVENT DATE: 20170223
